FAERS Safety Report 5932377-X (Version None)
Quarter: 2008Q4

REPORT INFORMATION
  Report Type: 
  Country: None (occurrence: None)
  Receive Date: 20081009
  Receipt Date: 20071205
  Transmission Date: 20090506
  Serious: Yes (Other)
  Sender: FDA-Public Use
  Company Number: PHEH2006US11227

PATIENT
  Age: 54 Year
  Sex: Female
  Weight: 77.6 kg

DRUGS (6)
  1. ZOMETA [Suspect]
     Dosage: 4MG IV EVERY 4 WEEKS, INTRAVENOUS
     Route: 042
     Dates: end: 20050926
  2. EFFEXOR [Concomitant]
  3. VERAPAMIL [Concomitant]
  4. LEXAPRO [Concomitant]
  5. PERCOCET [Concomitant]
  6. PRILOSEC [Concomitant]

REACTIONS (29)
  - ANXIETY [None]
  - ARTHRALGIA [None]
  - ARTHRITIS [None]
  - BONE DISORDER [None]
  - DECREASED INTEREST [None]
  - DENTAL CARE [None]
  - EAR PAIN [None]
  - ERYTHEMA [None]
  - GENERAL PHYSICAL HEALTH DETERIORATION [None]
  - GINGIVAL DISORDER [None]
  - GINGIVAL OPERATION [None]
  - HYPOAESTHESIA [None]
  - IMPAIRED WORK ABILITY [None]
  - LYMPHADENOPATHY [None]
  - MUCOSAL ULCERATION [None]
  - ORAL DISORDER [None]
  - ORAL INFECTION [None]
  - OSTEONECROSIS [None]
  - PAIN [None]
  - PERIODONTAL DESTRUCTION [None]
  - PERIODONTITIS [None]
  - RASH [None]
  - SWELLING [None]
  - TENDERNESS [None]
  - TOOTH ABSCESS [None]
  - TOOTH DEPOSIT [None]
  - TOOTH DISORDER [None]
  - TOOTH EXTRACTION [None]
  - WOUND DEHISCENCE [None]
